FAERS Safety Report 24181564 (Version 1)
Quarter: 2024Q3

REPORT INFORMATION
  Report Type: Spontaneous
  Country: US (occurrence: US)
  Receive Date: 20240807
  Receipt Date: 20240807
  Transmission Date: 20241017
  Serious: Yes (Hospitalization, Other)
  Sender: ABBVIE
  Company Number: US-ABBVIE-5865532

PATIENT
  Sex: Male

DRUGS (1)
  1. RINVOQ [Suspect]
     Active Substance: UPADACITINIB
     Indication: Product used for unknown indication
     Route: 048

REACTIONS (9)
  - Cardiac disorder [Unknown]
  - Haemoglobin abnormal [Unknown]
  - Diabetes mellitus [Unknown]
  - Malaise [Unknown]
  - Myelosuppression [Unknown]
  - Labyrinthitis [Unknown]
  - Arthritis [Unknown]
  - Blood loss anaemia [Unknown]
  - Troponin increased [Unknown]
